FAERS Safety Report 19087151 (Version 15)
Quarter: 2021Q3

REPORT INFORMATION
  Report Type: Report from Study
  Country: CA (occurrence: CA)
  Receive Date: 20210402
  Receipt Date: 20210907
  Transmission Date: 20211014
  Serious: Yes (Death, Hospitalization)
  Sender: FDA-Public Use
  Company Number: CA-EISAI MEDICAL RESEARCH-EC-2021-090568

PATIENT
  Age: 64 Year
  Sex: Male
  Weight: 59.1 kg

DRUGS (12)
  1. SYNTHROID [Concomitant]
     Active Substance: LEVOTHYROXINE SODIUM
     Dates: start: 20210303
  2. PROCHLORPERAZINE. [Concomitant]
     Active Substance: PROCHLORPERAZINE
     Dates: start: 20201208, end: 20210330
  3. PEMBROLIZUMAB. [Suspect]
     Active Substance: PEMBROLIZUMAB
     Indication: SQUAMOUS CELL CARCINOMA OF HEAD AND NECK
     Route: 041
     Dates: start: 20201117, end: 20210120
  4. NABILONE [Concomitant]
     Active Substance: NABILONE
     Dates: start: 20201120
  5. AMLODIPINE [Concomitant]
     Active Substance: AMLODIPINE BESYLATE
     Dates: start: 201701
  6. ROSUVASTATIN. [Concomitant]
     Active Substance: ROSUVASTATIN
     Dates: start: 201701
  7. NYSTATIN. [Concomitant]
     Active Substance: NYSTATIN
     Dates: start: 20201214
  8. LENVATINIB [Suspect]
     Active Substance: LENVATINIB
     Indication: SQUAMOUS CELL CARCINOMA OF HEAD AND NECK
     Route: 048
     Dates: start: 20201117, end: 20210227
  9. DIPHENHYDRAMINE;HYDROCORTISONE;NYSTATIN [Concomitant]
     Dates: start: 20210302
  10. ADVIL [Concomitant]
     Active Substance: IBUPROFEN
     Dates: start: 20201207
  11. PEMBROLIZUMAB. [Suspect]
     Active Substance: PEMBROLIZUMAB
     Route: 041
     Dates: start: 20210210, end: 20210210
  12. DEXILANT [Concomitant]
     Active Substance: DEXLANSOPRAZOLE
     Dates: start: 202004

REACTIONS (1)
  - Empyema [Recovering/Resolving]

NARRATIVE: CASE EVENT DATE: 20210325
